FAERS Safety Report 8187075-1 (Version None)
Quarter: 2012Q1

REPORT INFORMATION
  Report Type: 
  Country: None (occurrence: None)
  Receive Date: 20120306
  Receipt Date: 20120227
  Transmission Date: 20120608
  Serious: No
  Sender: FDA-Public Use
  Company Number: US-BAYER-2012-019958

PATIENT
  Age: 64 Year
  Sex: Female
  Weight: 82 kg

DRUGS (1)
  1. NAPROXEN (ALEVE) [Suspect]
     Dosage: 1 DF, QD
     Route: 048
     Dates: start: 20111227

REACTIONS (2)
  - DIZZINESS [None]
  - NO ADVERSE EVENT [None]
